FAERS Safety Report 6340889-2 (Version None)
Quarter: 2009Q3

REPORT INFORMATION
  Report Type: 
  Country: None (occurrence: None)
  Receive Date: 20090904
  Receipt Date: 20090826
  Transmission Date: 20100115
  Serious: Yes (Hospitalization)
  Sender: FDA-Public Use
  Company Number: US-JNJFOC-20081105748

PATIENT
  Age: 20 Year
  Sex: Male

DRUGS (4)
  1. RISPERIDONE [Suspect]
     Route: 030
     Dates: start: 20071105
  2. RISPERIDONE [Suspect]
     Indication: SCHIZOPHRENIA
     Route: 030
     Dates: start: 20071105
  3. PROPRANOLOL [Concomitant]
     Indication: AKATHISIA
  4. RISPERIDONE [Concomitant]

REACTIONS (2)
  - SCHIZOPHRENIA, PARANOID TYPE [None]
  - SELF INJURIOUS BEHAVIOUR [None]
